FAERS Safety Report 9602463 (Version 1)
Quarter: 2013Q4

REPORT INFORMATION
  Report Type: Spontaneous
  Country: US (occurrence: US)
  Receive Date: 20131007
  Receipt Date: 20131007
  Transmission Date: 20140711
  Serious: Yes (Hospitalization)
  Sender: FDA-Public Use
  Company Number: US-PFIZER INC-2013284327

PATIENT
  Age: 42 Year
  Sex: Female
  Weight: 71.66 kg

DRUGS (3)
  1. PRISTIQ [Suspect]
     Indication: DEPRESSION
     Dosage: 100 MG, 1X/DAY
     Route: 048
     Dates: end: 201309
  2. PRISTIQ [Suspect]
     Dosage: 100 MG, 1X/DAY
     Route: 048
     Dates: start: 201309
  3. SYNTHROID [Concomitant]
     Indication: THYROID DISORDER
     Dosage: UNK

REACTIONS (8)
  - Mental disorder [Unknown]
  - Nervous system disorder [Unknown]
  - Palpitations [Unknown]
  - Panic disorder [Unknown]
  - Feeling abnormal [Unknown]
  - Personality disorder [Unknown]
  - Malaise [Unknown]
  - Nasopharyngitis [Unknown]
